FAERS Safety Report 5070009-6 (Version None)
Quarter: 2006Q3

REPORT INFORMATION
  Report Type: 
  Country: None (occurrence: None)
  Receive Date: 20060731
  Receipt Date: 20060724
  Transmission Date: 20061208
  Serious: Yes (Hospitalization)
  Sender: FDA-Public Use
  Company Number: 200613138GDS

PATIENT
  Age: 82 Year
  Sex: Male

DRUGS (2)
  1. ASPIRIN [Suspect]
     Indication: ARTHRALGIA
     Dosage: ORAL
     Route: 048
  2. ASPIRIN [Suspect]
     Indication: ARTHRITIS
     Dosage: ORAL
     Route: 048

REACTIONS (17)
  - ARTHRALGIA [None]
  - CONDITION AGGRAVATED [None]
  - DYSPNOEA EXERTIONAL [None]
  - FAECES DISCOLOURED [None]
  - GASTRIC HAEMORRHAGE [None]
  - GASTRIC ULCER [None]
  - HAEMOGLOBIN DECREASED [None]
  - HYPOTENSION [None]
  - INCORRECT DOSE ADMINISTERED [None]
  - JOINT INJURY [None]
  - JOINT RANGE OF MOTION DECREASED [None]
  - MUSCLE HAEMORRHAGE [None]
  - MUSCLE SWELLING [None]
  - OESOPHAGITIS [None]
  - OSTEOARTHRITIS [None]
  - RENAL FAILURE [None]
  - VASCULAR PSEUDOANEURYSM [None]
